FAERS Safety Report 8365292 (Version 2)
Quarter: 2013Q1

REPORT INFORMATION
  Report Type: Spontaneous
  Country: US (occurrence: US)
  Receive Date: 20120128
  Receipt Date: 20130131
  Transmission Date: 20140127
  Serious: No
  Sender: FDA-Public Use
  Company Number: US-ABBOTT-11P-163-0714136-00

PATIENT
  Sex: Male
  Weight: 86.26 kg

DRUGS (2)
  1. HUMIRA [Suspect]
     Indication: RHEUMATOID ARTHRITIS
     Dosage: TAKES WHEN NEEDED.
     Route: 058
     Dates: start: 2004, end: 200811
  2. HUMIRA [Suspect]
     Indication: RHEUMATOID ARTHRITIS
     Route: 058
     Dates: start: 200811

REACTIONS (3)
  - Medication error [Unknown]
  - Incorrect drug administration duration [Unknown]
  - Incorrect dose administered [Unknown]
